FAERS Safety Report 25832890 (Version 1)
Quarter: 2025Q3

REPORT INFORMATION
  Report Type: Spontaneous
  Country: US (occurrence: US)
  Receive Date: 20250922
  Receipt Date: 20250922
  Transmission Date: 20251020
  Serious: Yes (Other)
  Sender: AMGEN
  Company Number: US-AMGEN-USASP2025184313

PATIENT
  Sex: Female

DRUGS (2)
  1. PAVBLU [Suspect]
     Active Substance: AFLIBERCEPT-AYYH
     Indication: Neovascular age-related macular degeneration
     Dosage: UNK, QMO
     Route: 065
  2. MELOXICAM [Concomitant]
     Active Substance: MELOXICAM
     Indication: Hip deformity

REACTIONS (1)
  - Neovascular age-related macular degeneration [Not Recovered/Not Resolved]
